FAERS Safety Report 6214935-0 (Version None)
Quarter: 2009Q2

REPORT INFORMATION
  Report Type: 
  Country: None (occurrence: None)
  Receive Date: 20090604
  Receipt Date: 20090601
  Transmission Date: 20091009
  Serious: Yes (Hospitalization)
  Sender: FDA-Public Use
  Company Number: US-RB-014931-09

PATIENT
  Age: 50 Year
  Sex: Male

DRUGS (12)
  1. SUBOXONE [Suspect]
     Route: 060
     Dates: start: 20090301
  2. DIAZEPAM [Concomitant]
     Dosage: DOSING INFORMATION UNKNOWN.
     Route: 065
  3. TIZANIDINE HCL [Concomitant]
     Dosage: DOSING INFORMATION UNKNOWN.
     Route: 065
  4. ALBUTEROL [Concomitant]
     Indication: ASTHMA
     Dosage: DOSING INFORMATION UNKNOWN.
     Route: 065
  5. PROZAC [Concomitant]
     Indication: DEPRESSION
     Dosage: DOSING INFORMATION UNKNOWN.
     Route: 065
  6. LISINOPRIL [Concomitant]
     Indication: HYPERTENSION
     Dosage: DOSING INFORMATION UNKNOWN.
     Route: 065
  7. DICYCLOMINE [Concomitant]
     Dosage: DOSING INFORMATION UNKNOWN.
     Route: 065
  8. COMBIVENT [Concomitant]
     Indication: ASTHMA
     Dosage: DOSING INFORMATION UNKNOWN.
     Route: 065
  9. NICOTINE [Concomitant]
     Dosage: DOSING INFORMATION UNKNOWN.
     Route: 065
  10. SYMBICORT [Concomitant]
     Indication: ASTHMA
     Dosage: DOSING INFORMATION UNKNOWN.
     Route: 065
  11. SPIRIVA [Concomitant]
     Indication: ASTHMA
     Dosage: DOSING INFORMATION UNKNOWN.
     Route: 065
  12. COUMADIN [Concomitant]
     Dosage: DOSING INFORMATION UNKNOWN.
     Route: 065

REACTIONS (1)
  - OEDEMA PERIPHERAL [None]
